FAERS Safety Report 11343751 (Version 15)
Quarter: 2018Q3

REPORT INFORMATION
  Report Type: Report from Study
  Country: CO (occurrence: CO)
  Receive Date: 20150806
  Receipt Date: 20180731
  Transmission Date: 20181010
  Serious: Yes (Life-Threatening, Hospitalization, Other)
  Sender: FDA-Public Use
  Company Number: CO-AMGEN-COLSL2015078279

PATIENT
  Age: 74 Year
  Sex: Male
  Weight: 56 kg

DRUGS (8)
  1. NPLATE [Suspect]
     Active Substance: ROMIPLOSTIM
     Indication: IMMUNE THROMBOCYTOPENIC PURPURA
     Dosage: 350 MUG, QWK
     Route: 058
     Dates: start: 20150721
  2. NPLATE [Suspect]
     Active Substance: ROMIPLOSTIM
     Dosage: 250 MUG, QWK
     Route: 058
  3. NPLATE [Suspect]
     Active Substance: ROMIPLOSTIM
     Dosage: 425 MUG, QWK
     Route: 058
  4. NPLATE [Suspect]
     Active Substance: ROMIPLOSTIM
     Dosage: 365 MUG, QWK
     Route: 058
  5. NPLATE [Suspect]
     Active Substance: ROMIPLOSTIM
     Dosage: 243 MUG, QWK
     Route: 058
     Dates: end: 20180503
  6. NPLATE [Suspect]
     Active Substance: ROMIPLOSTIM
     Dosage: 350 MUG, QWK
     Route: 058
  7. NPLATE [Suspect]
     Active Substance: ROMIPLOSTIM
     Dosage: 350 MUG, QWK
     Route: 058
     Dates: start: 20170327
  8. NPLATE [Suspect]
     Active Substance: ROMIPLOSTIM
     Dosage: 424 MUG, QWK
     Route: 058

REACTIONS (8)
  - Rectal haemorrhage [Not Recovered/Not Resolved]
  - Thrombocytosis [Recovered/Resolved]
  - Dementia Alzheimer^s type [Not Recovered/Not Resolved]
  - Pneumonia [Not Recovered/Not Resolved]
  - Urinary tract infection [Not Recovered/Not Resolved]
  - Thrombocytopenia [Not Recovered/Not Resolved]
  - Epistaxis [Recovered/Resolved]
  - Influenza [Not Recovered/Not Resolved]

NARRATIVE: CASE EVENT DATE: 20170201
